FAERS Safety Report 4496371-0 (Version None)
Quarter: 2004Q4

REPORT INFORMATION
  Report Type: 
  Country: None (occurrence: None)
  Receive Date: 20041108
  Receipt Date: 20041108
  Transmission Date: 20050328
  Serious: Yes (Other)
  Sender: FDA-Public Use
  Company Number: None

PATIENT
  Age: 57 Year
  Sex: Male
  Weight: 63.05 kg

DRUGS (7)
  1. PRAVACHOL [Suspect]
     Indication: HYPERLIPIDAEMIA
     Dosage: 1 QHS ORAL
     Route: 048
     Dates: start: 20040924, end: 20041101
  2. LISINOPRIL 40 [Concomitant]
  3. SAW PALMETTO [Concomitant]
  4. M.V.I. [Concomitant]
  5. VIT E [Concomitant]
  6. VIT C [Concomitant]
  7. ASPIRIN [Concomitant]

REACTIONS (1)
  - ERECTILE DYSFUNCTION [None]
